FAERS Safety Report 20374832 (Version 2)
Quarter: 2022Q2

REPORT INFORMATION
  Report Type: Spontaneous
  Country: DE (occurrence: DE)
  Receive Date: 20220125
  Receipt Date: 20220606
  Transmission Date: 20220720
  Serious: Yes (Other)
  Sender: FDA-Public Use
  Company Number: DE-009507513-1610DEU013353

PATIENT
  Age: 40 Year
  Sex: Male

DRUGS (6)
  1. MIRTAZAPINE [Suspect]
     Active Substance: MIRTAZAPINE
     Indication: Depression
     Dosage: 15 MILLIGRAM, ONCE A DAY (ALWAYS IN THE EVENING (QD))
     Route: 048
     Dates: start: 202112
  2. PROPECIA [Suspect]
     Active Substance: FINASTERIDE
     Indication: Product used for unknown indication
     Dosage: UNK
     Route: 048
  3. PROPECIA [Suspect]
     Active Substance: FINASTERIDE
     Indication: Androgenetic alopecia
     Dosage: UNK
     Route: 048
     Dates: start: 2003, end: 201611
  4. PROPECIA [Suspect]
     Active Substance: FINASTERIDE
     Dosage: UNK
     Route: 048
     Dates: start: 2019
  5. PROPECIA [Suspect]
     Active Substance: FINASTERIDE
     Dosage: 1 UNK, ONCE A DAY (AT LUNCH (QD))
     Route: 048
     Dates: start: 2021
  6. PROPECIA [Suspect]
     Active Substance: FINASTERIDE
     Dosage: UNK
     Route: 048
     Dates: start: 2021

REACTIONS (9)
  - Malaise [Recovering/Resolving]
  - Emotional disorder [Unknown]
  - Mental status changes [Unknown]
  - Liver function test increased [Unknown]
  - Alanine aminotransferase increased [Unknown]
  - Osteonecrosis [Unknown]
  - Feeling abnormal [Not Recovered/Not Resolved]
  - Emotional distress [Unknown]
  - Gamma-glutamyltransferase increased [Unknown]

NARRATIVE: CASE EVENT DATE: 20161001
